FAERS Safety Report 8519177-1 (Version None)
Quarter: 2012Q3

REPORT INFORMATION
  Report Type: 
  Country: None (occurrence: None)
  Receive Date: 20120718
  Receipt Date: 20120711
  Transmission Date: 20120928
  Serious: Yes (Hospitalization)
  Sender: FDA-Public Use
  Company Number: US-ALEXION-A201201242

PATIENT
  Sex: Male

DRUGS (6)
  1. CYCLOSPORINE [Concomitant]
     Indication: APLASTIC ANAEMIA
     Dosage: 50 MG, BID
     Route: 048
  2. CELLCEPT [Concomitant]
     Indication: APLASTIC ANAEMIA
     Dosage: 1000 MG, BID
     Route: 048
  3. ROMIPLOSTIM [Concomitant]
     Indication: PLATELET COUNT DECREASED
     Dosage: 58 ?G, SINGLE
     Route: 058
     Dates: start: 20120613, end: 20120613
  4. SOLIRIS [Suspect]
     Indication: PAROXYSMAL NOCTURNAL HAEMOGLOBINURIA
     Dosage: 600 MG, QW
     Route: 042
     Dates: start: 20120618
  5. ROMIPLOSTIM [Concomitant]
     Dosage: 58 ?G, SINGLE
     Route: 058
     Dates: start: 20120619, end: 20120619
  6. PREDNISONE [Concomitant]
     Indication: APLASTIC ANAEMIA
     Dosage: 20 MG, QD
     Route: 048

REACTIONS (7)
  - EYE INFECTION FUNGAL [None]
  - ZYGOMYCOSIS [None]
  - HEADACHE [None]
  - ORAL CANDIDIASIS [None]
  - TOOTHACHE [None]
  - FUNGAL INFECTION [None]
  - PANCYTOPENIA [None]
